FAERS Safety Report 11297107 (Version 1)
Quarter: 2015Q3

REPORT INFORMATION
  Report Type: Spontaneous
  Country: US (occurrence: US)
  Receive Date: 20150722
  Receipt Date: 20150722
  Transmission Date: 20151125
  Serious: No
  Sender: FDA-Public Use
  Company Number: US-ELI_LILLY_AND_COMPANY-US201102001846

PATIENT
  Sex: Female
  Weight: 49.89 kg

DRUGS (1)
  1. EVISTA [Suspect]
     Active Substance: RALOXIFENE HYDROCHLORIDE
     Dosage: 60 MG, DAILY (1/D)
     Route: 048

REACTIONS (7)
  - Hyperhidrosis [Unknown]
  - Confusional state [Unknown]
  - Heart rate increased [Unknown]
  - Blood pressure increased [Not Recovered/Not Resolved]
  - Headache [Unknown]
  - Hot flush [Unknown]
  - Palpitations [Unknown]
